FAERS Safety Report 15782474 (Version 18)
Quarter: 2020Q1

REPORT INFORMATION
  Report Type: Spontaneous
  Country: CA (occurrence: CA)
  Receive Date: 20190102
  Receipt Date: 20200212
  Transmission Date: 20200409
  Serious: Yes (Other)
  Sender: FDA-Public Use
  Company Number: CA-PFIZER INC-2018505756

PATIENT
  Age: 42 Year
  Sex: Female

DRUGS (17)
  1. PROZAC [Concomitant]
     Active Substance: FLUOXETINE HYDROCHLORIDE
     Dosage: 20 MG, DAILY
     Route: 048
  2. VALTREX [Concomitant]
     Active Substance: VALACYCLOVIR HYDROCHLORIDE
     Dosage: 500 MG, AS NEEDED (TWICE DAILY)
     Route: 048
     Dates: start: 2019
  3. XELJANZ [Suspect]
     Active Substance: TOFACITINIB CITRATE
     Indication: COLITIS ULCERATIVE
     Dosage: 10 MG, 2X/DAY
     Route: 048
     Dates: start: 20181129, end: 201902
  4. XELJANZ [Suspect]
     Active Substance: TOFACITINIB CITRATE
     Dosage: 10 MG, DAILY (5MG TABLET 2 TABLET EVERY DAY)
     Route: 048
     Dates: start: 2019, end: 2019
  5. METHOTREXATE SODIUM. [Concomitant]
     Active Substance: METHOTREXATE SODIUM
     Dosage: 5 MG, DAILY (Q)
     Dates: start: 20181203
  6. ESTRADOT [Concomitant]
     Active Substance: ESTRADIOL
     Dosage: 100 UG, 2X/WEEK
  7. XELJANZ [Suspect]
     Active Substance: TOFACITINIB CITRATE
     Dosage: 10 MG, 2X/DAY
     Route: 048
     Dates: start: 2019, end: 2019
  8. XELJANZ [Suspect]
     Active Substance: TOFACITINIB CITRATE
     Dosage: 10 MG, 2X/DAY (WAS MEANT TO TAKE 5 MG BID BUT ONLY HAD 10 MG TABS)
     Route: 048
     Dates: start: 2019, end: 20191231
  9. PROZAC [Concomitant]
     Active Substance: FLUOXETINE HYDROCHLORIDE
     Dosage: UNK, DAILY (20-30 MG)
     Route: 048
  10. PROMETRIUM [Concomitant]
     Active Substance: PROGESTERONE
     Dosage: 200 MG, 1X/DAY
     Route: 048
  11. PROFERRIN [Concomitant]
     Active Substance: IRON
     Dosage: 22 MG, UNK
  12. ENTOCORT [Concomitant]
     Active Substance: BUDESONIDE
     Dosage: 3 MG, DAILY
     Dates: start: 20181203
  13. METHOTREXATE SODIUM. [Concomitant]
     Active Substance: METHOTREXATE SODIUM
     Dosage: 5 MG, UNK
     Route: 065
     Dates: end: 20181203
  14. HYDROCORTISONE. [Concomitant]
     Active Substance: HYDROCORTISONE
     Dosage: 100 MG, 1X/DAY
     Dates: start: 2019
  15. VITAMIN D 2000 [Concomitant]
     Active Substance: VITAMIN D NOS
     Dosage: 2000 IU, UNK
  16. XELJANZ [Suspect]
     Active Substance: TOFACITINIB CITRATE
     Dosage: UNK
     Route: 048
     Dates: start: 2020
  17. ENTOCORT [Concomitant]
     Active Substance: BUDESONIDE
     Dosage: 3 MG, UNK
     Dates: end: 20181203

REACTIONS (31)
  - Disease recurrence [Unknown]
  - Somnolence [Unknown]
  - Inflammation [Unknown]
  - Nasopharyngitis [Recovering/Resolving]
  - Insomnia [Not Recovered/Not Resolved]
  - Fatigue [Not Recovered/Not Resolved]
  - Osteoporosis [Unknown]
  - Haematochezia [Not Recovered/Not Resolved]
  - Immunosuppression [Unknown]
  - Blood iron decreased [Unknown]
  - Viral infection [Not Recovered/Not Resolved]
  - Mastitis [Unknown]
  - Energy increased [Unknown]
  - Viral pharyngitis [Not Recovered/Not Resolved]
  - Product dose omission [Unknown]
  - Headache [Not Recovered/Not Resolved]
  - Oropharyngeal pain [Not Recovered/Not Resolved]
  - Viral upper respiratory tract infection [Recovered/Resolved]
  - Weight increased [Unknown]
  - Thrombosis [Unknown]
  - Abdominal pain [Unknown]
  - Nausea [Recovered/Resolved]
  - Arthritis [Not Recovered/Not Resolved]
  - Malaise [Unknown]
  - Condition aggravated [Not Recovered/Not Resolved]
  - Colitis ulcerative [Not Recovered/Not Resolved]
  - Vomiting [Unknown]
  - Vitamin D decreased [Unknown]
  - Breast mass [Unknown]
  - Diarrhoea [Unknown]
  - Abdominal discomfort [Unknown]
